FAERS Safety Report 7517246-6 (Version None)
Quarter: 2011Q2

REPORT INFORMATION
  Report Type: 
  Country: None (occurrence: None)
  Receive Date: 20110601
  Receipt Date: 20110531
  Transmission Date: 20111010
  Serious: Yes (Life-Threatening)
  Sender: FDA-Public Use
  Company Number: CN-BAYER-2011-046479

PATIENT
  Age: 65 Year
  Sex: Male

DRUGS (1)
  1. ULTRAVIST 150 [Suspect]
     Indication: COMPUTERISED TOMOGRAM
     Dosage: 85 ML, ONCE
     Route: 042
     Dates: start: 20110530, end: 20110530

REACTIONS (5)
  - URTICARIA [None]
  - CONJUNCTIVAL HYPERAEMIA [None]
  - NAUSEA [None]
  - SHOCK [None]
  - VOMITING [None]
